FAERS Safety Report 9416553 (Version 3)
Quarter: 2013Q3

REPORT INFORMATION
  Report Type: Spontaneous
  Country: US (occurrence: US)
  Receive Date: 20130724
  Receipt Date: 20130924
  Transmission Date: 20140515
  Serious: Yes (Hospitalization, Other)
  Sender: FDA-Public Use
  Company Number: US-ELI_LILLY_AND_COMPANY-US201307004272

PATIENT
  Sex: Male
  Weight: 79.36 kg

DRUGS (1)
  1. HUMALOG 50% LISPRO, 50% NPL [Suspect]
     Indication: TYPE 2 DIABETES MELLITUS
     Dosage: UNK UNK, UNKNOWN
     Dates: start: 201302, end: 201303

REACTIONS (7)
  - Renal impairment [Recovered/Resolved]
  - Blood glucose abnormal [Recovered/Resolved]
  - Abdominal distension [Recovered/Resolved]
  - Weight increased [Recovered/Resolved]
  - Muscle tightness [Recovered/Resolved]
  - Muscle rigidity [Recovered/Resolved]
  - Anxiety [Unknown]
